FAERS Safety Report 13635561 (Version 2)
Quarter: 2017Q3

REPORT INFORMATION
  Report Type: Spontaneous
  Country: US (occurrence: US)
  Receive Date: 20170609
  Receipt Date: 20170711
  Transmission Date: 20171127
  Serious: No
  Sender: FDA-Public Use
  Company Number: US-HETERO LABS LTD-2021722

PATIENT
  Age: 67 Year
  Sex: Female

DRUGS (3)
  1. ETODOLAC. [Concomitant]
     Active Substance: ETODOLAC
     Route: 065
  2. METHOCARBAMOL. [Suspect]
     Active Substance: METHOCARBAMOL
     Indication: MUSCLE SPASMS
     Route: 065
     Dates: start: 20170205
  3. METHOCARBAMOL. [Suspect]
     Active Substance: METHOCARBAMOL
     Route: 065

REACTIONS (1)
  - Drug ineffective [Unknown]
